FAERS Safety Report 5663226-5 (Version None)
Quarter: 2008Q1

REPORT INFORMATION
  Report Type: 
  Country: None (occurrence: None)
  Receive Date: 20080313
  Receipt Date: 20080311
  Transmission Date: 20080703
  Serious: Yes (Other)
  Sender: FDA-Public Use
  Company Number: ES-BRISTOL-MYERS SQUIBB COMPANY-14108914

PATIENT
  Age: 31 Year
  Sex: Female

DRUGS (4)
  1. CYCLOPHOSPHAMIDE [Suspect]
     Indication: BREAST CANCER
  2. DOXORUBICIN HCL [Suspect]
  3. FLUOROURACIL [Suspect]
     Indication: BREAST CANCER
  4. TRASTUZUMAB [Suspect]
     Indication: BREAST CANCER
     Dosage: STARTED AS 3-WEEKLY THERAPY WITH A LOADING DOSE OF 8 MG/KG AND LATER RECOMMENCED AT 2 MG/KG WEEKLY

REACTIONS (1)
  - LIVER INJURY [None]
